FAERS Safety Report 18339047 (Version 2)
Quarter: 2020Q4

REPORT INFORMATION
  Report Type: Spontaneous
  Country: US (occurrence: US)
  Receive Date: 20201002
  Receipt Date: 20201016
  Transmission Date: 20210113
  Serious: Yes (Death)
  Sender: FDA-Public Use
  Company Number: US-ROCHE-2689194

PATIENT
  Age: 85 Year
  Sex: Male

DRUGS (1)
  1. ESBRIET [Suspect]
     Active Substance: PIRFENIDONE
     Indication: IDIOPATHIC PULMONARY FIBROSIS
     Dosage: 801 MG THREE TIMES A DAY; ONGOING:UNKNOWN
     Route: 048
     Dates: start: 20200806

REACTIONS (1)
  - Death [Fatal]

NARRATIVE: CASE EVENT DATE: 20200909
